FAERS Safety Report 4404511-4 (Version None)
Quarter: 2004Q3

REPORT INFORMATION
  Report Type: 
  Country: None (occurrence: None)
  Receive Date: 20040720
  Receipt Date: 20040706
  Transmission Date: 20050211
  Serious: Yes (Hospitalization)
  Sender: FDA-Public Use
  Company Number: 178444

PATIENT
  Age: 29 Year
  Sex: Male
  Weight: 97 kg

DRUGS (3)
  1. AVONEX [Suspect]
     Indication: MULTIPLE SCLEROSIS
     Dosage: 30 MCG QW IM
     Route: 030
     Dates: start: 19980101, end: 20030902
  2. AVONEX [Suspect]
     Indication: MULTIPLE SCLEROSIS
     Dosage: 30 MCG QW IM
     Route: 030
     Dates: start: 20031001
  3. PANTOPRAZOL [Concomitant]

REACTIONS (8)
  - CARDIAC FAILURE [None]
  - CARDIOMYOPATHY [None]
  - EJECTION FRACTION DECREASED [None]
  - EXERCISE LACK OF [None]
  - HYPERTENSION [None]
  - MYOCARDITIS [None]
  - NASOPHARYNGITIS [None]
  - PERICARDIAL EFFUSION [None]
